FAERS Safety Report 8959484 (Version 1)
Quarter: 2012Q4

REPORT INFORMATION
  Report Type: 
  Country: US (occurrence: US)
  Receive Date: 20121212
  Receipt Date: 20121212
  Transmission Date: 20130627
  Serious: Yes (Hospitalization)
  Sender: FDA-Public Use
  Company Number: US-BAYER-2012-127350

PATIENT
  Age: 34 Year
  Sex: Female

DRUGS (3)
  1. BEYAZ [Suspect]
  2. YASMIN [Suspect]
  3. FLAGYL [Concomitant]
     Indication: BACTERIAL VAGINOSIS

REACTIONS (3)
  - Pulmonary embolism [Recovered/Resolved]
  - Pelvic venous thrombosis [Recovered/Resolved]
  - Deep vein thrombosis [Recovered/Resolved]
